FAERS Safety Report 7496435-3 (Version None)
Quarter: 2011Q2

REPORT INFORMATION
  Report Type: 
  Country: None (occurrence: None)
  Receive Date: 20110523
  Receipt Date: 20110511
  Transmission Date: 20111010
  Serious: Yes (Hospitalization)
  Sender: FDA-Public Use
  Company Number: PHHY2011US37876

PATIENT
  Sex: Female
  Weight: 88.4 kg

DRUGS (4)
  1. PROTONIX [Concomitant]
     Dosage: UNK UKN, UNK
  2. GILENYA [Suspect]
     Indication: RELAPSING-REMITTING MULTIPLE SCLEROSIS
     Dosage: 0.5 MG, DAILY
     Route: 048
     Dates: start: 20110217
  3. LEVOTHYROXINE SODIUM [Concomitant]
     Indication: HYPOTHYROIDISM
     Dosage: 2 DF, DAILY
  4. LOVENOX [Concomitant]
     Dosage: UNK UKN, UNK

REACTIONS (19)
  - HYPOAESTHESIA [None]
  - NASOPHARYNGITIS [None]
  - CONVULSION [None]
  - HEADACHE [None]
  - CONFUSIONAL STATE [None]
  - AUTOMATISM EPILEPTIC [None]
  - DYSARTHRIA [None]
  - MUSCLE RIGIDITY [None]
  - COUGH [None]
  - GRAND MAL CONVULSION [None]
  - ALTERED STATE OF CONSCIOUSNESS [None]
  - PARTIAL SEIZURES WITH SECONDARY GENERALISATION [None]
  - DIZZINESS POSTURAL [None]
  - GAIT DISTURBANCE [None]
  - SOMNOLENCE [None]
  - LETHARGY [None]
  - SENSORY DISTURBANCE [None]
  - COMPLEX PARTIAL SEIZURES [None]
  - ASTHENIA [None]
